FAERS Safety Report 7210330-6 (Version None)
Quarter: 2011Q1

REPORT INFORMATION
  Report Type: 
  Country: None (occurrence: None)
  Receive Date: 20110103
  Receipt Date: 20110103
  Transmission Date: 20110831
  Serious: Yes (Hospitalization)
  Sender: FDA-Public Use
  Company Number: None

PATIENT
  Sex: Female
  Weight: 88 kg

DRUGS (2)
  1. HERCEPTIN [Suspect]
     Dosage: 2112 MG
     Dates: end: 20101228
  2. TAXOL [Suspect]
     Dosage: 1727 MG
     Dates: end: 20101228

REACTIONS (5)
  - EAR HAEMORRHAGE [None]
  - ANAEMIA [None]
  - EYE HAEMORRHAGE [None]
  - EPISTAXIS [None]
  - HYPERTENSION [None]
